FAERS Safety Report 5535082-7 (Version None)
Quarter: 2007Q4

REPORT INFORMATION
  Report Type: 
  Country: None (occurrence: None)
  Receive Date: 20071203
  Receipt Date: 20071115
  Transmission Date: 20080405
  Serious: Yes (Death)
  Sender: FDA-Public Use
  Company Number: 2007JP005220

PATIENT
  Age: 67 Year
  Sex: Male

DRUGS (2)
  1. PROGRAF [Suspect]
     Indication: RENAL TRANSPLANT
  2. STEROID FORMULATION [Concomitant]

REACTIONS (8)
  - BACK PAIN [None]
  - BILIARY TRACT DISORDER [None]
  - CONTINUOUS HAEMODIAFILTRATION [None]
  - HEPATIC FIBROSIS [None]
  - HEPATITIS B [None]
  - HEPATITIS CHOLESTATIC [None]
  - HYPERPLASIA [None]
  - PANCREATITIS ACUTE [None]
